FAERS Safety Report 15732186 (Version 1)
Quarter: 2018Q4

REPORT INFORMATION
  Report Type: Spontaneous
  Country: US (occurrence: US)
  Receive Date: 20181217
  Receipt Date: 20181217
  Transmission Date: 20190205
  Serious: Yes (Other)
  Sender: FDA-Public Use
  Company Number: US-MYLANLABS-2018M1093293

PATIENT

DRUGS (1)
  1. VIVARIN [Suspect]
     Active Substance: CAFFEINE
     Indication: PRODUCT USED FOR UNKNOWN INDICATION
     Dosage: UNK

REACTIONS (4)
  - Depression [Unknown]
  - Drug withdrawal syndrome [Unknown]
  - Dementia Alzheimer^s type [Unknown]
  - Pain [Unknown]
